FAERS Safety Report 8130222-8 (Version None)
Quarter: 2012Q1

REPORT INFORMATION
  Report Type: 
  Country: None (occurrence: None)
  Receive Date: 20120210
  Receipt Date: 20120131
  Transmission Date: 20120608
  Serious: Yes (Hospitalization)
  Sender: FDA-Public Use
  Company Number: PHHO2011FR14359

PATIENT
  Sex: Female
  Weight: 90 kg

DRUGS (12)
  1. VALGANCICLOVIR [Concomitant]
     Indication: CYTOMEGALOVIRUS INFECTION
     Dosage: 450 MG, BID
     Route: 048
  2. CYTARABINE [Suspect]
     Dosage: 40 MG, QD
     Route: 042
     Dates: start: 20110607, end: 20110607
  3. DEXAMETHASONE [Suspect]
     Dosage: 40 MG, UNK
     Route: 042
     Dates: start: 20110607, end: 20110629
  4. METHOTREXATE [Suspect]
     Dosage: 15 MG, UNK
     Route: 042
     Dates: start: 20110614, end: 20110614
  5. CYTARABINE [Suspect]
     Dosage: UNK
  6. IMATINIB MESYLATE [Suspect]
     Indication: ACUTE LYMPHOCYTIC LEUKAEMIA
     Dosage: 800 MG, QD
     Route: 048
     Dates: start: 20110607, end: 20110704
  7. NEUPOGEN [Concomitant]
     Indication: APLASIA
     Dosage: UNK
     Route: 058
  8. POTASSIUM CHLORIDE [Concomitant]
     Indication: HYPOKALAEMIA
     Dosage: 5 MG, QD
     Route: 048
     Dates: start: 20110628, end: 20110712
  9. METHOTREXATE [Suspect]
     Dosage: 15 MG, UNK
     Route: 042
     Dates: start: 20110607, end: 20110607
  10. VINCRISTINE [Suspect]
     Dosage: 2 MG, UNK
     Route: 042
     Dates: start: 20110607, end: 20110628
  11. IMATINIB MESYLATE [Suspect]
     Dosage: UNK
     Dates: start: 20110713
  12. BACTRIM DS [Concomitant]
     Indication: PROPHYLAXIS
     Dosage: 1 DF, QD
     Route: 048
     Dates: start: 20110608, end: 20110712

REACTIONS (3)
  - LUNG DISORDER [None]
  - FEBRILE NEUTROPENIA [None]
  - CYTOMEGALOVIRUS INFECTION [None]
